FAERS Safety Report 6027587-X (Version None)
Quarter: 2009Q1

REPORT INFORMATION
  Report Type: 
  Country: None (occurrence: None)
  Receive Date: 20090105
  Receipt Date: 20081030
  Transmission Date: 20090719
  Serious: No
  Sender: FDA-Public Use
  Company Number: US-BAYER-200814262BCC

PATIENT
  Age: 47 Year
  Sex: Female
  Weight: 100 kg

DRUGS (2)
  1. ALEVE (CAPLET) [Suspect]
     Indication: ANALGESIA
     Dosage: TOTAL DAILY DOSE: 1100 MG  UNIT DOSE: 220 MG
     Route: 048
     Dates: start: 20081030
  2. ALEVE (CAPLET) [Suspect]
     Dosage: TOTAL DAILY DOSE: 1100 MG  UNIT DOSE: 220 MG
     Route: 048
     Dates: start: 20081030

REACTIONS (3)
  - HEADACHE [None]
  - NAUSEA [None]
  - SOMNOLENCE [None]
